FAERS Safety Report 5108919-3 (Version None)
Quarter: 2006Q3

REPORT INFORMATION
  Report Type: 
  Country: None (occurrence: None)
  Receive Date: 20060920
  Receipt Date: 20060915
  Transmission Date: 20061208
  Serious: Yes (Hospitalization)
  Sender: FDA-Public Use
  Company Number: DK-BRISTOL-MYERS SQUIBB COMPANY-13509815

PATIENT
  Age: 24 Year
  Sex: Male

DRUGS (3)
  1. ABILIFY [Suspect]
     Indication: SCHIZOPHRENIA
     Dates: start: 20050616, end: 20050101
  2. SEROQUEL [Concomitant]
     Dates: start: 20050718, end: 20050101
  3. TOPIRAMATE [Concomitant]
     Dates: start: 20050120, end: 20050101

REACTIONS (1)
  - MONONEURITIS [None]
